FAERS Safety Report 23837563 (Version 1)
Quarter: 2024Q2

REPORT INFORMATION
  Report Type: Spontaneous
  Country: FR (occurrence: FR)
  Receive Date: 20240509
  Receipt Date: 20240509
  Transmission Date: 20240715
  Serious: Yes (Hospitalization)
  Sender: FDA-Public Use
  Company Number: None

PATIENT
  Age: 69 Year
  Sex: Male

DRUGS (1)
  1. KETOPROFEN [Suspect]
     Active Substance: KETOPROFEN
     Indication: Drug provocation test
     Dosage: TIME INTERVAL: TOTAL
     Route: 048
     Dates: start: 20231211

REACTIONS (1)
  - Allergy test positive [Recovered/Resolved]

NARRATIVE: CASE EVENT DATE: 20231211
